FAERS Safety Report 19230881 (Version 5)
Quarter: 2021Q3

REPORT INFORMATION
  Report Type: Report from Study
  Country: US (occurrence: US)
  Receive Date: 20210507
  Receipt Date: 20210930
  Transmission Date: 20211014
  Serious: Yes (Other)
  Sender: FDA-Public Use
  Company Number: US-TAKEDA-US202032247

PATIENT
  Sex: Female

DRUGS (2)
  1. HYQVIA [Suspect]
     Active Substance: HUMAN IMMUNOGLOBULIN G\HYALURONIDASE RECOMBINANT HUMAN
     Indication: IMMUNODEFICIENCY COMMON VARIABLE
     Dosage: 25 GRAM
     Route: 065
  2. COVID?19 VACCINE NOS. [Suspect]
     Active Substance: COVID-19 VACCINE NOS
     Indication: COVID-19 IMMUNISATION
     Dosage: UNK
     Route: 065

REACTIONS (24)
  - Gait disturbance [Unknown]
  - Pain in extremity [Unknown]
  - Dyspnoea [Unknown]
  - Nausea [Unknown]
  - Hepatic enzyme decreased [Unknown]
  - Nerve injury [Unknown]
  - Fatigue [Unknown]
  - Bone pain [Unknown]
  - Immunoglobulins decreased [Unknown]
  - Bone density decreased [Unknown]
  - Limb injury [Unknown]
  - Pain [Unknown]
  - General physical health deterioration [Unknown]
  - Sinusitis [Unknown]
  - Joint stiffness [Unknown]
  - Vaccination complication [Unknown]
  - Arthralgia [Unknown]
  - Rash [Unknown]
  - Adverse drug reaction [Unknown]
  - Herpes zoster [Unknown]
  - Multiple allergies [Unknown]
  - Infusion site pain [Unknown]
  - Chills [Unknown]
  - Systemic lupus erythematosus [Unknown]
